FAERS Safety Report 9215133 (Version 4)
Quarter: 2015Q1

REPORT INFORMATION
  Report Type: Report from Study
  Country: CA (occurrence: CA)
  Receive Date: 20130405
  Receipt Date: 20150211
  Transmission Date: 20150721
  Serious: Yes (Other)
  Sender: FDA-Public Use
  Company Number: PHHY2012CA117523

PATIENT
  Age: 43 Year
  Sex: Female

DRUGS (4)
  1. REMERON [Suspect]
     Active Substance: MIRTAZAPINE
     Indication: INSOMNIA
     Route: 065
  2. RIVOTRIL [Concomitant]
     Active Substance: CLONAZEPAM
     Indication: PRODUCT USED FOR UNKNOWN INDICATION
     Route: 065
  3. TASIGNA [Suspect]
     Active Substance: NILOTINIB
     Indication: CHRONIC MYELOID LEUKAEMIA
     Dosage: 400 MG, BID
     Route: 048
     Dates: start: 200910
  4. CYMBALTA [Concomitant]
     Active Substance: DULOXETINE HYDROCHLORIDE
     Indication: PRODUCT USED FOR UNKNOWN INDICATION
     Route: 065

REACTIONS (17)
  - Swelling [Unknown]
  - Fatigue [Unknown]
  - Pruritus [Recovering/Resolving]
  - Gastrointestinal disorder [Unknown]
  - Nightmare [Unknown]
  - Bronchitis [Unknown]
  - Insomnia [Unknown]
  - Rash [Recovering/Resolving]
  - Palpitations [Unknown]
  - Arthralgia [Unknown]
  - Dyspnoea [Unknown]
  - Cardiac murmur [Unknown]
  - Myalgia [Unknown]
  - Acne [Unknown]
  - Hot flush [Unknown]
  - Ventricular extrasystoles [Recovering/Resolving]
  - Dyspepsia [Recovering/Resolving]

NARRATIVE: CASE EVENT DATE: 201301
